FAERS Safety Report 22079524 (Version 1)
Quarter: 2023Q1

REPORT INFORMATION
  Report Type: Spontaneous
  Country: US (occurrence: None)
  Receive Date: 20230308
  Receipt Date: 20230308
  Transmission Date: 20230417
  Serious: No
  Sender: FDA-Public Use
  Company Number: None

PATIENT
  Age: 53 Year
  Sex: Male
  Weight: 151.95 kg

DRUGS (25)
  1. LENALIDOMIDE [Suspect]
     Active Substance: LENALIDOMIDE
     Indication: Plasma cell myeloma
     Dosage: OTHER FREQUENCY : 14D ON 7D OFF;?
     Route: 048
     Dates: start: 202301
  2. ASCORBIC ACID [Concomitant]
     Active Substance: ASCORBIC ACID
  3. ATENOLOL [Concomitant]
     Active Substance: ATENOLOL
  4. ATORVASTATIN [Concomitant]
     Active Substance: ATORVASTATIN
  5. BACITRACIN [Concomitant]
     Active Substance: BACITRACIN
  6. CALCIUM ACETATE [Concomitant]
     Active Substance: CALCIUM ACETATE
  7. CHLORTHALIDONE [Concomitant]
     Active Substance: CHLORTHALIDONE
  8. COLACE [Concomitant]
     Active Substance: DOCUSATE SODIUM
  9. DETROL LA [Concomitant]
     Active Substance: TOLTERODINE TARTRATE
  10. DEXAMETHASONE [Concomitant]
     Active Substance: DEXAMETHASONE
  11. ELIQUIS [Concomitant]
     Active Substance: APIXABAN
  12. FERROUS SULFATE [Concomitant]
     Active Substance: FERROUS SULFATE
  13. GABAPENTIN [Concomitant]
     Active Substance: GABAPENTIN
  14. LANTUS [Concomitant]
  15. LASIX [Concomitant]
     Active Substance: FUROSEMIDE
  16. LEVOTHYROXINE [Concomitant]
     Active Substance: LEVOTHYROXINE
  17. MAGNESIUM GLUCONATE [Concomitant]
     Active Substance: MAGNESIUM GLUCONATE
  18. NOVOLOG [Concomitant]
     Active Substance: INSULIN ASPART
  19. OMEPRAZOLE [Concomitant]
     Active Substance: OMEPRAZOLE
  20. OXYCODONE [Concomitant]
     Active Substance: OXYCODONE
  21. OXYMETAZOLINE [Concomitant]
     Active Substance: OXYMETAZOLINE
  22. PANTOPRAZOLE [Concomitant]
     Active Substance: PANTOPRAZOLE
  23. PHENTERMINE [Concomitant]
     Active Substance: PHENTERMINE
  24. TIZANIDINE [Concomitant]
     Active Substance: TIZANIDINE
  25. VITAMIN E [Concomitant]
     Active Substance: .ALPHA.-TOCOPHEROL

REACTIONS (2)
  - Fatigue [None]
  - Blood glucose increased [None]
